FAERS Safety Report 12687960 (Version 1)
Quarter: 2016Q3

REPORT INFORMATION
  Report Type: Spontaneous
  Country: US (occurrence: US)
  Receive Date: 20160825
  Receipt Date: 20160825
  Transmission Date: 20161109
  Serious: No
  Sender: FDA-Public Use
  Company Number: US-NOVOPROD-484186

PATIENT
  Age: 61 Year
  Sex: Female
  Weight: 86.64 kg

DRUGS (1)
  1. VICTOZA [Suspect]
     Active Substance: LIRAGLUTIDE
     Indication: TYPE 2 DIABETES MELLITUS
     Dosage: 0.6 MG, QD
     Route: 058
     Dates: end: 201512

REACTIONS (1)
  - Goitre [Recovering/Resolving]

NARRATIVE: CASE EVENT DATE: 201512
